FAERS Safety Report 20015985 (Version 1)
Quarter: 2021Q4

REPORT INFORMATION
  Report Type: Spontaneous
  Country: US (occurrence: None)
  Receive Date: 20211102
  Receipt Date: 20211102
  Transmission Date: 20220303
  Serious: Yes (Life-Threatening)
  Sender: FDA-Public Use
  Company Number: None

PATIENT
  Age: 71 Year
  Sex: Male
  Weight: 89.8 kg

DRUGS (2)
  1. BARICITINIB [Suspect]
     Active Substance: BARICITINIB
     Indication: COVID-19 treatment
     Dosage: FREQUENCY : DAILY;?
     Route: 048
     Dates: start: 20211027
  2. BARICITINIB [Concomitant]
     Active Substance: BARICITINIB
     Dates: start: 20211027

REACTIONS (2)
  - Pulmonary embolism [None]
  - COVID-19 [None]

NARRATIVE: CASE EVENT DATE: 20211031
